FAERS Safety Report 11278414 (Version 2)
Quarter: 2015Q3

REPORT INFORMATION
  Report Type: Report from Study
  Country: JP (occurrence: JP)
  Receive Date: 20150717
  Receipt Date: 20150717
  Transmission Date: 20151125
  Serious: Yes (Other)
  Sender: FDA-Public Use
  Company Number: JP-ACCORD-032292

PATIENT
  Age: 28 Year

DRUGS (2)
  1. IRINOTECAN [Suspect]
     Active Substance: IRINOTECAN
     Indication: GERM CELL CANCER
     Dosage: ON DAYS 1 AND 15?3 CHEMOTHERAPY CYCLES
  2. NEDAPLATIN [Suspect]
     Active Substance: NEDAPLATIN
     Indication: GERM CELL CANCER
     Dosage: ON DAY 1 OF A 28-DAY CYCLE

REACTIONS (3)
  - Neutropenia [Unknown]
  - Thrombocytopenia [Unknown]
  - Gastrointestinal disorder [Unknown]
